FAERS Safety Report 6835349-6 (Version None)
Quarter: 2010Q3

REPORT INFORMATION
  Report Type: 
  Country: None (occurrence: None)
  Receive Date: 20100707
  Receipt Date: 20100628
  Transmission Date: 20110219
  Serious: Yes (Other)
  Sender: FDA-Public Use
  Company Number: TPA2010A03859

PATIENT
  Age: 48 Year
  Sex: Female

DRUGS (1)
  1. PREVACID [Suspect]
     Indication: HELICOBACTER INFECTION
     Dosage: 30 MG, 2 IN 1 D

REACTIONS (3)
  - CONVULSION [None]
  - HYPOCALCAEMIA [None]
  - TETANY [None]
